FAERS Safety Report 7990906-9 (Version None)
Quarter: 2011Q4

REPORT INFORMATION
  Report Type: 
  Country: None (occurrence: None)
  Receive Date: 20111219
  Receipt Date: 20111213
  Transmission Date: 20120403
  Serious: Yes (Other)
  Sender: FDA-Public Use
  Company Number: US-TEVA-312697USA

PATIENT
  Sex: Female

DRUGS (2)
  1. ANOVLAR [Concomitant]
  2. CLARAVIS [Suspect]
     Indication: ACNE
     Dosage: 40 MILLIGRAM;
     Dates: start: 20111101, end: 20111207

REACTIONS (1)
  - UNINTENDED PREGNANCY [None]
